FAERS Safety Report 7920209-X (Version None)
Quarter: 2011Q4

REPORT INFORMATION
  Report Type: 
  Country: None (occurrence: None)
  Receive Date: 20111117
  Receipt Date: 20111115
  Transmission Date: 20120403
  Serious: Yes (Other)
  Sender: FDA-Public Use
  Company Number: JP-PFIZER INC-2011271252

PATIENT
  Age: 52 Year
  Sex: Male

DRUGS (2)
  1. TRAMADOL HYDROCHLORIDE AND ACETAMINOPHEN [Concomitant]
     Dosage: 4 TABLETS DAILY
     Route: 048
  2. LYRICA [Suspect]
     Dosage: 150 MG/DAY
     Route: 048

REACTIONS (4)
  - DIABETIC NEPHROPATHY [None]
  - SOMNOLENCE [None]
  - DIZZINESS [None]
  - PROTEINURIA [None]
